FAERS Safety Report 7776520-9 (Version None)
Quarter: 2011Q3

REPORT INFORMATION
  Report Type: 
  Country: None (occurrence: None)
  Receive Date: 20110922
  Receipt Date: 20110922
  Transmission Date: 20111222
  Serious: Yes (Hospitalization)
  Sender: FDA-Public Use
  Company Number: None

PATIENT
  Sex: Male
  Weight: 61.5078 kg

DRUGS (20)
  1. OXYCONTIN [Concomitant]
  2. COMPAZINE [Concomitant]
  3. HYDROCORTISONE [Concomitant]
  4. AMBIEN [Concomitant]
  5. VALIUM [Concomitant]
  6. METOMIDAZOLE GEL [Concomitant]
  7. ADVAIR DISKUS 100/50 [Concomitant]
  8. OXYCODONE [Concomitant]
  9. DULCOLAX [Concomitant]
  10. CETUXIMAB [Concomitant]
  11. AGGRENOX [Concomitant]
  12. SENOKOT [Concomitant]
  13. ERLOTINIB HYDROCHLORIDE [Concomitant]
  14. XOPENEX [Concomitant]
  15. MIRALAX [Concomitant]
  16. CARBOPLATIN [Suspect]
     Indication: LARYNGEAL CANCER METASTATIC
     Dosage: 1.5 AUC (145MG) WEEKLY
     Dates: start: 20110524
  17. ONDANSETRON [Concomitant]
  18. PACLITAXEL [Suspect]
     Dosage: 80MG/M2 (143MG) WEEKLY
     Dates: start: 20110524
  19. SIMVASTATIN [Concomitant]
  20. EFFEXOR [Concomitant]

REACTIONS (6)
  - CONFUSIONAL STATE [None]
  - FEBRILE NEUTROPENIA [None]
  - FATIGUE [None]
  - UROSEPSIS [None]
  - MENTAL STATUS CHANGES [None]
  - DRUG DOSE OMISSION [None]
